FAERS Safety Report 7988147-4 (Version None)
Quarter: 2011Q4

REPORT INFORMATION
  Report Type: 
  Country: None (occurrence: None)
  Receive Date: 20111216
  Receipt Date: 20110606
  Transmission Date: 20120403
  Serious: No
  Sender: FDA-Public Use
  Company Number: US-BRISTOL-MYERS SQUIBB COMPANY-15806656

PATIENT
  Sex: Female

DRUGS (4)
  1. ABILIFY [Suspect]
     Indication: BIPOLAR DISORDER
     Dosage: BEGAN AT 5 MG
  2. TRAZODONE HCL [Concomitant]
  3. PROZAC [Concomitant]
  4. REMERON [Concomitant]

REACTIONS (1)
  - PARKINSONISM [None]
